FAERS Safety Report 4961054-7 (Version None)
Quarter: 2006Q1

REPORT INFORMATION
  Report Type: 
  Country: None (occurrence: None)
  Receive Date: 20060328
  Receipt Date: 20060320
  Transmission Date: 20060701
  Serious: Yes (Hospitalization)
  Sender: FDA-Public Use
  Company Number: MEDI-0003802

PATIENT
  Age: 9 Month
  Sex: 0

DRUGS (1)
  1. SYNAGIS [Suspect]
     Indication: ANTIVIRAL PROPHYLAXIS
     Dosage: 1 IN 30 D, INTRAMUSCULAR
     Route: 030
     Dates: start: 20051021, end: 20051021

REACTIONS (6)
  - COUGH [None]
  - NASAL CONGESTION [None]
  - PETECHIAE [None]
  - PYREXIA [None]
  - UNEVALUABLE EVENT [None]
  - WHEEZING [None]
